FAERS Safety Report 5732031-3 (Version None)
Quarter: 2008Q2

REPORT INFORMATION
  Report Type: 
  Country: None (occurrence: None)
  Receive Date: 20080508
  Receipt Date: 20080429
  Transmission Date: 20081010
  Serious: Yes (Hospitalization)
  Sender: FDA-Public Use
  Company Number: US-PURDUE-USA_2008_0032647

PATIENT
  Age: 56 Year
  Sex: Male

DRUGS (2)
  1. OXYCODONE HCL [Suspect]
     Indication: DRUG USE FOR UNKNOWN INDICATION
  2. BENZODIAZEPINE DERIVATIVES [Suspect]
     Indication: DRUG USE FOR UNKNOWN INDICATION

REACTIONS (3)
  - DRUG INTERACTION [None]
  - INTENTIONAL DRUG MISUSE [None]
  - SUICIDAL IDEATION [None]
